FAERS Safety Report 9693088 (Version 1)
Quarter: 2013Q4

REPORT INFORMATION
  Report Type: Spontaneous
  Country: US (occurrence: None)
  Receive Date: 20131115
  Receipt Date: 20131115
  Transmission Date: 20140711
  Serious: Yes (Other)
  Sender: FDA-Public Use
  Company Number: None

PATIENT
  Age: 64 Year
  Sex: Female

DRUGS (11)
  1. RIVAROXABAN [Suspect]
     Indication: DEEP VEIN THROMBOSIS
     Dates: start: 20120208, end: 20120210
  2. IMETREX PRN [Concomitant]
  3. HYDROCHLOROTHIAZIDE [Concomitant]
  4. VERAPAMIL [Concomitant]
  5. ATENOLOL [Concomitant]
  6. SULINDAC [Concomitant]
  7. METHOTREXATE [Concomitant]
  8. ITRACONAZOLE [Concomitant]
  9. ZYRTEC [Concomitant]
  10. REMICADE INFUSION [Concomitant]
  11. FOSAMAX [Concomitant]

REACTIONS (1)
  - Drug-induced liver injury [None]
